FAERS Safety Report 11680339 (Version 3)
Quarter: 2015Q4

REPORT INFORMATION
  Report Type: Spontaneous
  Country: US (occurrence: US)
  Receive Date: 20151027
  Receipt Date: 20151110
  Transmission Date: 20160304
  Serious: No
  Sender: FDA-Public Use
  Company Number: US-ELI_LILLY_AND_COMPANY-US201005006815

PATIENT
  Age: 63 Year
  Sex: Female
  Weight: 45.35 kg

DRUGS (18)
  1. CALCIUM [Concomitant]
     Active Substance: CALCIUM
     Dosage: 900 MG, DAILY (1/D)
  2. CALCIUM [Concomitant]
     Active Substance: CALCIUM
  3. FORTEO [Suspect]
     Active Substance: TERIPARATIDE
     Indication: OSTEOPOROSIS
     Dosage: 20 UG, DAILY (1/D)
     Route: 058
     Dates: start: 20100224
  4. FORTEO [Suspect]
     Active Substance: TERIPARATIDE
     Dosage: 20 UG, DAILY (1/D)
     Route: 058
  5. FORTEO [Suspect]
     Active Substance: TERIPARATIDE
     Dosage: 20 UG, QD
     Route: 058
  6. FORTEO [Suspect]
     Active Substance: TERIPARATIDE
     Dosage: 20 UG, QD
  7. VITAMIN C [Concomitant]
     Active Substance: ASCORBIC ACID
     Dosage: 1000 MG, BID
  8. FORTEO [Suspect]
     Active Substance: TERIPARATIDE
     Dosage: 20 UG, DAILY (1/D)
     Route: 058
  9. FORTEO [Suspect]
     Active Substance: TERIPARATIDE
     Dosage: 20 UG, DAILY (1/D)
     Route: 058
  10. FORTEO [Suspect]
     Active Substance: TERIPARATIDE
     Dosage: 20 UG, DAILY (1/D)
     Route: 058
  11. FORTEO [Suspect]
     Active Substance: TERIPARATIDE
     Dosage: 20 UG, DAILY (1/D)
     Route: 058
  12. FORTEO [Suspect]
     Active Substance: TERIPARATIDE
     Dosage: 20 UG, QD
     Route: 058
  13. VITAMIN C [Concomitant]
     Active Substance: ASCORBIC ACID
     Dosage: UNK, UNKNOWN
  14. FORTEO [Suspect]
     Active Substance: TERIPARATIDE
     Dosage: 20 UG, DAILY (1/D)
     Route: 058
     Dates: start: 20100603
  15. FORTEO [Suspect]
     Active Substance: TERIPARATIDE
     Dosage: 20 UG, DAILY (1/D)
     Route: 058
  16. VITAMIN D [Concomitant]
     Active Substance: CHOLECALCIFEROL
     Dosage: UNK, UNKNOWN
  17. CALCIUM [Concomitant]
     Active Substance: CALCIUM
     Dosage: 1500 MG, DAILY (1/D)
  18. VITAMINS [Concomitant]
     Active Substance: VITAMINS

REACTIONS (49)
  - Vaginal discharge [Unknown]
  - Abnormal faeces [Not Recovered/Not Resolved]
  - Limb discomfort [Unknown]
  - Constipation [Not Recovered/Not Resolved]
  - Cough [Unknown]
  - Muscle spasms [Recovered/Resolved]
  - Bone pain [Unknown]
  - Eating disorder [Unknown]
  - Muscular weakness [Not Recovered/Not Resolved]
  - Pain in extremity [Unknown]
  - Limb injury [Unknown]
  - Fall [Unknown]
  - Injection site haemorrhage [Not Recovered/Not Resolved]
  - Chest pain [Recovered/Resolved]
  - Pain [Unknown]
  - Arthralgia [Not Recovered/Not Resolved]
  - Injection site bruising [Recovering/Resolving]
  - Muscle disorder [Unknown]
  - Crying [Unknown]
  - Musculoskeletal stiffness [Not Recovered/Not Resolved]
  - Haemorrhage [Unknown]
  - General physical health deterioration [Unknown]
  - Depression [Not Recovered/Not Resolved]
  - Laziness [Not Recovered/Not Resolved]
  - Gait disturbance [Not Recovered/Not Resolved]
  - Muscle spasms [Unknown]
  - Stress [Unknown]
  - Sleep disorder due to a general medical condition [Recovered/Resolved]
  - Injection site injury [Unknown]
  - Injection site erythema [Recovered/Resolved]
  - Headache [Recovered/Resolved]
  - Blood calcium increased [Not Recovered/Not Resolved]
  - Myalgia [Unknown]
  - Spider vein [Unknown]
  - Weight decreased [Recovered/Resolved]
  - Hypersomnia [Unknown]
  - Generalised oedema [Unknown]
  - Skin disorder [Unknown]
  - Hypotonia [Unknown]
  - Contusion [Recovered/Resolved]
  - Accident [Unknown]
  - Injection site discolouration [Not Recovered/Not Resolved]
  - Thyroid function test abnormal [Not Recovered/Not Resolved]
  - Tremor [Recovering/Resolving]
  - Weight increased [Not Recovered/Not Resolved]
  - Fatigue [Not Recovered/Not Resolved]
  - Feeling jittery [Recovering/Resolving]
  - Feeling abnormal [Not Recovered/Not Resolved]
  - Asthenia [Not Recovered/Not Resolved]

NARRATIVE: CASE EVENT DATE: 201007
